FAERS Safety Report 17299595 (Version 2)
Quarter: 2020Q1

REPORT INFORMATION
  Report Type: Report from Study
  Country: US (occurrence: US)
  Receive Date: 20200121
  Receipt Date: 20200128
  Transmission Date: 20200409
  Serious: Yes (Hospitalization)
  Sender: FDA-Public Use
  Company Number: US-EXELIXIS-CABO-19026373

PATIENT
  Age: 50 Year
  Sex: Female

DRUGS (2)
  1. CABOMETYX [Suspect]
     Active Substance: CABOZANTINIB S-MALATE
     Indication: METASTATIC RENAL CELL CARCINOMA
     Dosage: 60 MG, QD
     Route: 048
  2. CABOMETYX [Suspect]
     Active Substance: CABOZANTINIB S-MALATE
     Indication: METASTASES TO NERVOUS SYSTEM
     Dosage: 40 MG, QD
     Route: 048

REACTIONS (6)
  - Oxygen saturation decreased [Unknown]
  - Blood pressure decreased [Unknown]
  - Pathological fracture [Recovered/Resolved with Sequelae]
  - Post procedural infection [Unknown]
  - Disorientation [Unknown]
  - Metastases to bone [Unknown]

NARRATIVE: CASE EVENT DATE: 20191227
